FAERS Safety Report 8877087 (Version 2)
Quarter: 2012Q4

REPORT INFORMATION
  Report Type: 
  Country: US (occurrence: US)
  Receive Date: 20121029
  Receipt Date: 20121119
  Transmission Date: 20130627
  Serious: Yes (Hospitalization)
  Sender: FDA-Public Use
  Company Number: US-GLAXOSMITHKLINE-A0998029A

PATIENT
  Age: 46 Year
  Sex: Female

DRUGS (5)
  1. ARZERRA [Suspect]
     Indication: NON-HODGKIN^S LYMPHOMA
     Dosage: 96MLH Weekly
     Route: 042
  2. TYLENOL [Concomitant]
     Route: 048
  3. BENADRYL [Concomitant]
     Route: 042
  4. DEXTRORPHAN [Concomitant]
     Route: 042
  5. CLADRIBINE [Concomitant]
     Route: 042

REACTIONS (5)
  - Pulmonary thrombosis [Recovered/Resolved]
  - Oropharyngeal pain [Recovered/Resolved]
  - Dysphonia [Recovered/Resolved]
  - Dysphagia [Recovered/Resolved]
  - Off label use [Unknown]
